FAERS Safety Report 6707566-7 (Version None)
Quarter: 2010Q2

REPORT INFORMATION
  Report Type: 
  Country: None (occurrence: None)
  Receive Date: 20100503
  Receipt Date: 20100426
  Transmission Date: 20101027
  Serious: Yes (Other)
  Sender: FDA-Public Use
  Company Number: GB-BAYER-201023567GPV

PATIENT

DRUGS (2)
  1. CIPROFLOXACIN [Suspect]
     Indication: INFECTION
     Dosage: UNIT DOSE: 400 MG
     Route: 042
     Dates: start: 20060101
  2. MEROPENEM [Concomitant]
     Indication: INFECTION

REACTIONS (1)
  - PATHOGEN RESISTANCE [None]
